FAERS Safety Report 23166759 (Version 1)
Quarter: 2023Q4

REPORT INFORMATION
  Report Type: Spontaneous
  Country: PH (occurrence: PH)
  Receive Date: 20231109
  Receipt Date: 20231109
  Transmission Date: 20240110
  Serious: Yes (Death)
  Sender: FDA-Public Use
  Company Number: PH-PFIZER INC-PV202300164815

PATIENT
  Age: 53 Year
  Sex: Female
  Weight: 41 kg

DRUGS (2)
  1. IBRANCE [Suspect]
     Active Substance: PALBOCICLIB
     Dosage: UNK
     Dates: start: 202108
  2. LETROZOLE [Concomitant]
     Active Substance: LETROZOLE
     Indication: Breast cancer female
     Dosage: 2.5 MG, 1X/DAY (1 TABLET ONCE A DAY)
     Dates: start: 202108, end: 20230818

REACTIONS (3)
  - Neoplasm progression [Fatal]
  - Cardio-respiratory arrest [Fatal]
  - Multiple organ dysfunction syndrome [Fatal]

NARRATIVE: CASE EVENT DATE: 20230921
